FAERS Safety Report 11145002 (Version 2)
Quarter: 2015Q3

REPORT INFORMATION
  Report Type: Spontaneous
  Country: SE (occurrence: SE)
  Receive Date: 20150526
  Receipt Date: 20150714
  Transmission Date: 20151125
  Serious: Yes (Disabling)
  Sender: FDA-Public Use
  Company Number: SE-TEVA-557226ISR

PATIENT
  Sex: Female

DRUGS (2)
  1. FLUOXETINE [Suspect]
     Active Substance: FLUOXETINE\FLUOXETINE HYDROCHLORIDE
     Route: 064
  2. PAROXETIN 20MG [Suspect]
     Active Substance: PAROXETINE HYDROCHLORIDE
     Route: 065

REACTIONS (2)
  - Language disorder [Not Recovered/Not Resolved]
  - Foetal exposure during pregnancy [Unknown]
